FAERS Safety Report 4951751-1 (Version None)
Quarter: 2006Q1

REPORT INFORMATION
  Report Type: 
  Country: None (occurrence: None)
  Receive Date: 20060323
  Receipt Date: 20060316
  Transmission Date: 20060701
  Serious: Yes (Life-Threatening)
  Sender: FDA-Public Use
  Company Number: JP-JPN-A200600969

PATIENT
  Age: 1 Year
  Sex: Male
  Weight: 8 kg

DRUGS (22)
  1. ALKERAN [Suspect]
     Indication: CORD BLOOD TRANSPLANT THERAPY
     Route: 042
     Dates: start: 20040411, end: 20040412
  2. BUSULFAN [Suspect]
     Indication: CORD BLOOD TRANSPLANT THERAPY
  3. VEPESID [Suspect]
     Indication: CORD BLOOD TRANSPLANT THERAPY
     Route: 042
     Dates: start: 20040413, end: 20040413
  4. METHOTREXATE [Suspect]
     Indication: IMMUNOSUPPRESSANT DRUG THERAPY
     Route: 065
     Dates: start: 20040416, end: 20040416
  5. METHOTREXATE [Suspect]
     Route: 065
     Dates: start: 20040418, end: 20040421
  6. CYCLOSPORINE [Suspect]
  7. GRAN [Concomitant]
     Dates: start: 20040420, end: 20040505
  8. NEORAL [Concomitant]
     Indication: IMMUNOSUPPRESSANT DRUG THERAPY
     Route: 065
     Dates: start: 20040414, end: 20040611
  9. FLUMARIN [Concomitant]
     Route: 042
     Dates: start: 20040415, end: 20040423
  10. FLUMARIN [Concomitant]
     Route: 042
     Dates: start: 20040610, end: 20040614
  11. FLUMARIN [Concomitant]
     Route: 042
     Dates: start: 20040703, end: 20040707
  12. DIFLUCAN [Concomitant]
     Route: 042
     Dates: start: 20040418, end: 20040507
  13. DIFLUCAN [Concomitant]
     Route: 042
     Dates: start: 20040709, end: 20040713
  14. VICCLOX [Concomitant]
     Route: 042
     Dates: start: 20040419, end: 20040509
  15. IMMUNE GLOBULIN INTRAVENOUS (HUMAN) [Concomitant]
     Route: 042
     Dates: start: 20040423, end: 20040423
  16. IMMUNE GLOBULIN INTRAVENOUS (HUMAN) [Concomitant]
     Route: 042
     Dates: start: 20040505, end: 20040505
  17. IMMUNE GLOBULIN INTRAVENOUS (HUMAN) [Concomitant]
     Route: 042
     Dates: start: 20040512, end: 20040512
  18. IMMUNE GLOBULIN INTRAVENOUS (HUMAN) [Concomitant]
     Route: 042
     Dates: start: 20040519, end: 20040519
  19. MAXIPIME [Concomitant]
     Route: 042
     Dates: start: 20040423, end: 20040425
  20. CARBENIN [Concomitant]
     Route: 042
     Dates: start: 20040425, end: 20040507
  21. FOSCAVIR [Concomitant]
     Route: 042
     Dates: start: 20040525, end: 20040610
  22. FOSMICIN S [Concomitant]
     Route: 042
     Dates: start: 20040607, end: 20040610

REACTIONS (1)
  - CYTOMEGALOVIRUS VIRAEMIA [None]
